FAERS Safety Report 9952475 (Version 1)
Quarter: 2014Q1

REPORT INFORMATION
  Report Type: Report from Study
  Country: US (occurrence: US)
  Receive Date: 20140304
  Receipt Date: 20140304
  Transmission Date: 20141002
  Serious: No
  Sender: FDA-Public Use
  Company Number: US-ABBVIE-13P-163-1071320-00

PATIENT
  Age: 28 Year
  Sex: Female

DRUGS (11)
  1. HUMIRA [Suspect]
     Indication: CROHN^S DISEASE
     Dates: start: 20130312, end: 20130312
  2. HUMIRA [Suspect]
     Dates: start: 20130313, end: 20130313
  3. HUMIRA [Suspect]
     Dates: start: 20130326
  4. ASACOL [Concomitant]
     Indication: COLITIS
     Route: 048
  5. IMURAN [Concomitant]
     Indication: COLITIS
     Dosage: 150 MG DAILY
  6. ROWASA [Concomitant]
     Indication: COLITIS
     Dosage: 4 GM DAILY
  7. DEXILANT [Concomitant]
     Indication: GASTRITIS
     Dosage: 60 MG DAILY
  8. CARAFATE [Concomitant]
     Indication: GASTRITIS
  9. ZOLOFT [Concomitant]
     Indication: DEPRESSION
     Dosage: 100 MG DAILY
  10. ADDERALL [Concomitant]
     Indication: ATTENTION DEFICIT/HYPERACTIVITY DISORDER
     Dosage: 20 MG DAILY
  11. OCELLA [Concomitant]
     Indication: PRODUCT USED FOR UNKNOWN INDICATION
     Dosage: BIRTH CONTROL PILL DAILY

REACTIONS (3)
  - Fatigue [Not Recovered/Not Resolved]
  - Headache [Not Recovered/Not Resolved]
  - Injection site erythema [Not Recovered/Not Resolved]
